FAERS Safety Report 6901604-4 (Version None)
Quarter: 2010Q3

REPORT INFORMATION
  Report Type: 
  Country: None (occurrence: None)
  Receive Date: 20100803
  Receipt Date: 20080226
  Transmission Date: 20110219
  Serious: No
  Sender: FDA-Public Use
  Company Number: US-PFIZER INC-2008018863

PATIENT
  Sex: Female
  Weight: 127 kg

DRUGS (3)
  1. LYRICA [Suspect]
     Indication: CARPAL TUNNEL SYNDROME
     Route: 048
     Dates: start: 20080125, end: 20080127
  2. ANTIHYPERTENSIVES [Concomitant]
  3. DRUG USED IN DIABETES [Concomitant]

REACTIONS (6)
  - DISTURBANCE IN ATTENTION [None]
  - MUSCULAR WEAKNESS [None]
  - NAUSEA [None]
  - VERTIGO [None]
  - VISION BLURRED [None]
  - VOMITING [None]
